FAERS Safety Report 6370533-X (Version None)
Quarter: 2009Q3

REPORT INFORMATION
  Report Type: 
  Country: None (occurrence: None)
  Receive Date: 20090923
  Receipt Date: 20090916
  Transmission Date: 20100115
  Serious: Yes (Death, Hospitalization)
  Sender: FDA-Public Use
  Company Number: A0807674A

PATIENT
  Age: 58 Year
  Sex: Female

DRUGS (2)
  1. HYCAMTIN [Suspect]
     Dosage: 4MG PER DAY
     Route: 042
     Dates: start: 20090708, end: 20090710
  2. CISPLATIN [Concomitant]

REACTIONS (4)
  - DEATH [None]
  - DYSURIA [None]
  - PAIN [None]
  - SEPSIS [None]
